FAERS Safety Report 6551160-8 (Version None)
Quarter: 2010Q1

REPORT INFORMATION
  Report Type: 
  Country: None (occurrence: None)
  Receive Date: 20100121
  Receipt Date: 20100107
  Transmission Date: 20100710
  Serious: Yes (Life-Threatening, Hospitalization)
  Sender: FDA-Public Use
  Company Number: 2010AL000143

PATIENT
  Age: 56 Year
  Sex: Female

DRUGS (3)
  1. METFORMIN HCL [Suspect]
     Indication: DIABETES MELLITUS
     Dosage: 850 MG; BID;
     Dates: start: 20090915, end: 20091218
  2. EZETROL [Concomitant]
  3. CORODIL [Concomitant]

REACTIONS (3)
  - AZOTAEMIA [None]
  - DIALYSIS [None]
  - LACTIC ACIDOSIS [None]
